FAERS Safety Report 9887009 (Version 2)
Quarter: 2014Q1

REPORT INFORMATION
  Report Type: Spontaneous
  Country: US (occurrence: US)
  Receive Date: 20140211
  Receipt Date: 20140327
  Transmission Date: 20141002
  Serious: Yes (Hospitalization)
  Sender: FDA-Public Use
  Company Number: US-BIOGENIDEC-2014BI013207

PATIENT
  Age: 37 Year
  Sex: Female

DRUGS (1)
  1. TYSABRI [Suspect]
     Indication: CROHN^S DISEASE
     Route: 042
     Dates: start: 20130911, end: 20131107

REACTIONS (5)
  - Drug ineffective [Unknown]
  - Dizziness [Unknown]
  - Hypoaesthesia [Unknown]
  - Mental disorder [Unknown]
  - Crohn^s disease [Unknown]
